FAERS Safety Report 11552480 (Version 1)
Quarter: 2015Q3

REPORT INFORMATION
  Report Type: Report from Study
  Country: US (occurrence: US)
  Receive Date: 20150925
  Receipt Date: 20150925
  Transmission Date: 20151125
  Serious: Yes (Hospitalization, Other)
  Sender: FDA-Public Use
  Company Number: US-JNJFOC-20150920516

PATIENT
  Age: 83 Year
  Sex: Female

DRUGS (4)
  1. NORCO [Concomitant]
     Active Substance: ACETAMINOPHEN\HYDROCODONE BITARTRATE
  2. IMBRUVICA [Suspect]
     Active Substance: IBRUTINIB
     Indication: CHRONIC LYMPHOCYTIC LEUKAEMIA
     Route: 048
     Dates: start: 20150814
  3. XARELTO [Suspect]
     Active Substance: RIVAROXABAN
     Indication: BLOOD DISORDER
     Route: 065
     Dates: start: 2015
  4. ATIVAN [Concomitant]
     Active Substance: LORAZEPAM

REACTIONS (4)
  - Urinary tract infection [Unknown]
  - Incorrect dose administered [Not Recovered/Not Resolved]
  - Cerebral haemorrhage [Unknown]
  - Dehydration [Unknown]

NARRATIVE: CASE EVENT DATE: 2015
